FAERS Safety Report 7321073-2 (Version None)
Quarter: 2011Q1

REPORT INFORMATION
  Report Type: 
  Country: None (occurrence: None)
  Receive Date: 20110119
  Receipt Date: 20100910
  Transmission Date: 20110831
  Serious: Yes (Other)
  Sender: FDA-Public Use
  Company Number: A-NJ2008-22440

PATIENT
  Age: 62 Year
  Sex: Female
  Weight: 83 kg

DRUGS (7)
  1. SYNTHROID (LEVOTHYROXINE SOODIUM) [Concomitant]
  2. ASPIRIN [Concomitant]
  3. AZMACORT [Concomitant]
  4. NEXIUM IV [Concomitant]
  5. TRACLEER [Suspect]
     Indication: PULMONARY ARTERIAL HYPERTENSION
     Dosage: ORAL, 125 MG, BID, ORAL, 62.5 MG, BID, ORAL
     Route: 048
     Dates: start: 20080620, end: 20080720
  6. TRACLEER [Suspect]
     Indication: PULMONARY ARTERIAL HYPERTENSION
     Dosage: ORAL, 125 MG, BID, ORAL, 62.5 MG, BID, ORAL
     Route: 048
     Dates: start: 20080728, end: 20081008
  7. TRACLEER [Suspect]
     Indication: PULMONARY ARTERIAL HYPERTENSION
     Dosage: ORAL, 125 MG, BID, ORAL, 62.5 MG, BID, ORAL
     Route: 048
     Dates: start: 20090318, end: 20100901

REACTIONS (3)
  - ASPARTATE AMINOTRANSFERASE INCREASED [None]
  - LIVER FUNCTION TEST ABNORMAL [None]
  - BLOOD ALKALINE PHOSPHATASE INCREASED [None]
